FAERS Safety Report 10575643 (Version 3)
Quarter: 2015Q1

REPORT INFORMATION
  Report Type: Spontaneous
  Country: US (occurrence: US)
  Receive Date: 20141111
  Receipt Date: 20150331
  Transmission Date: 20150720
  Serious: Yes (Hospitalization, Other)
  Sender: FDA-Public Use
  Company Number: US-PFIZER INC-2014307735

PATIENT
  Age: 64 Year
  Sex: Female

DRUGS (3)
  1. BETADINE [Suspect]
     Active Substance: POVIDONE-IODINE
     Indication: PROPHYLAXIS
     Dosage: UNK
     Dates: start: 1970
  2. BETADINE [Suspect]
     Active Substance: POVIDONE-IODINE
     Dosage: (AS DIRECTED)
     Route: 061
     Dates: start: 201102
  3. COMPAZINE [Suspect]
     Active Substance: PROCHLORPERAZINE MALEATE
     Indication: NAUSEA
     Dosage: UNK
     Dates: start: 1970

REACTIONS (2)
  - Hallucination [Unknown]
  - Drug hypersensitivity [Not Recovered/Not Resolved]
